FAERS Safety Report 5153273-4 (Version None)
Quarter: 2006Q4

REPORT INFORMATION
  Report Type: 
  Country: None (occurrence: None)
  Receive Date: 20061117
  Receipt Date: 20061108
  Transmission Date: 20070319
  Serious: Yes (Other)
  Sender: FDA-Public Use
  Company Number: US-ROCHE-470675

PATIENT
  Age: 73 Year
  Sex: Male
  Weight: 83.5 kg

DRUGS (1)
  1. ACCUTANE [Suspect]
     Indication: NEOPLASM PROPHYLAXIS
     Dosage: THE PATIENT WAS ON LARGE QUANTITIES FOR AT LEAST ONE YEAR.
     Route: 065
     Dates: start: 19910615

REACTIONS (2)
  - BLINDNESS TRANSIENT [None]
  - CARDIOMYOPATHY [None]
